FAERS Safety Report 7261385-4 (Version None)
Quarter: 2011Q1

REPORT INFORMATION
  Report Type: 
  Country: None (occurrence: None)
  Receive Date: 20110130
  Receipt Date: 20101008
  Transmission Date: 20110831
  Serious: No
  Sender: FDA-Public Use
  Company Number: US-ABBOTT-10P-163-0677451-00

PATIENT
  Sex: Female
  Weight: 69.462 kg

DRUGS (5)
  1. SIMVASTATIN [Concomitant]
     Indication: BLOOD CHOLESTEROL INCREASED
     Dates: start: 20090101
  2. FOSAMAX [Concomitant]
     Indication: OSTEOPOROSIS
  3. HUMIRA [Suspect]
     Indication: RHEUMATOID ARTHRITIS
     Dates: start: 20090601, end: 20100901
  4. METHOTREXATE [Concomitant]
     Indication: RHEUMATOID ARTHRITIS
     Dosage: 7 TABS A WEEK
     Dates: start: 20000101
  5. FOLIC ACID [Concomitant]
     Indication: CARDIAC DISORDER
     Dates: start: 20000101

REACTIONS (5)
  - VISION BLURRED [None]
  - VITH NERVE DISORDER [None]
  - INJECTION SITE PAIN [None]
  - EYE MOVEMENT DISORDER [None]
  - HEPATIC ENZYME INCREASED [None]
